FAERS Safety Report 26024247 (Version 1)
Quarter: 2025Q4

REPORT INFORMATION
  Report Type: Spontaneous
  Country: US (occurrence: US)
  Receive Date: 20251111
  Receipt Date: 20251111
  Transmission Date: 20260117
  Serious: Yes (Other)
  Sender: ROCHE
  Company Number: US-ROCHE-3554967

PATIENT
  Sex: Female

DRUGS (1)
  1. OCREVUS [Suspect]
     Active Substance: OCRELIZUMAB
     Indication: Multiple sclerosis
     Dosage: STRENGTH: 300 MG/10 ML
     Route: 042
     Dates: start: 202210

REACTIONS (7)
  - Depression [Unknown]
  - Arthralgia [Unknown]
  - Arthropathy [Unknown]
  - Depressed mood [Unknown]
  - Feeling of despair [Unknown]
  - Drug ineffective [Unknown]
  - Multiple sclerosis relapse [Unknown]
